FAERS Safety Report 8016845-5 (Version None)
Quarter: 2012Q1

REPORT INFORMATION
  Report Type: 
  Country: None (occurrence: None)
  Receive Date: 20120102
  Receipt Date: 20111228
  Transmission Date: 20120608
  Serious: Yes (Other)
  Sender: FDA-Public Use
  Company Number: US-ASTRAZENECA-2009SE13409

PATIENT
  Age: 45 Year
  Sex: Female
  Weight: 109.8 kg

DRUGS (30)
  1. TRAZODONE HCL [Concomitant]
     Indication: DEPRESSION
     Dates: start: 20071101, end: 20080201
  2. NASONEX [Concomitant]
     Dates: start: 20060325
  3. PRAVACHOL [Concomitant]
     Dosage: 20
     Dates: start: 20090220
  4. METFORMIN HCL [Concomitant]
     Dates: start: 20090220
  5. PROZAC [Concomitant]
     Dates: start: 20050505
  6. ZOLOFT [Concomitant]
     Dates: start: 20060325
  7. ATENOLOL [Concomitant]
     Dates: start: 20060325
  8. CLARITIN [Concomitant]
     Dates: start: 20060325
  9. SERTRALINE HYDROCHLORIDE [Concomitant]
     Indication: DEPRESSION
     Dates: start: 20061201, end: 20070701
  10. LUPRON [Concomitant]
  11. VISTARIL [Concomitant]
     Dates: start: 20060325
  12. ELAVIL [Concomitant]
     Route: 048
     Dates: start: 20080528
  13. LEXAPRO [Concomitant]
  14. AMITRIPTYLINE HCL [Concomitant]
     Indication: DEPRESSION
     Dates: start: 20070301, end: 20080201
  15. SEROQUEL [Suspect]
     Indication: DEPRESSION
     Route: 048
     Dates: start: 20050505
  16. KLONOPIN [Concomitant]
  17. CYMBALTA [Concomitant]
     Indication: DEPRESSION
     Dates: start: 20071101, end: 20080201
  18. WELLBUTRIN [Concomitant]
     Dates: start: 20050505
  19. NIFEDIPINE [Concomitant]
     Dates: start: 20060325
  20. ADALAT CC [Concomitant]
     Dates: start: 20080528
  21. TRAZODONE HCL [Concomitant]
     Indication: SLEEP DISORDER
     Dates: start: 20071101, end: 20080201
  22. PREMPRO [Concomitant]
     Dosage: 0.3/1.5
     Dates: start: 20080528
  23. HYDROCHLOROTHIAZIDE [Concomitant]
     Dates: start: 20080528
  24. ASPIRIN [Concomitant]
     Dosage: 325
     Dates: start: 20090220
  25. PAXIL [Concomitant]
  26. PRILOSEC [Concomitant]
     Dates: start: 20060325
  27. LISINOPRIL [Concomitant]
     Dates: start: 20090220
  28. BUPROPION HCL [Concomitant]
     Indication: DEPRESSION
     Dates: start: 20061201, end: 20070701
  29. ZOCOR [Concomitant]
     Dosage: 40- 80 MG
     Dates: start: 20080528
  30. PROTONIX [Concomitant]
     Dates: start: 20080528

REACTIONS (12)
  - BLOOD CHOLESTEROL INCREASED [None]
  - CEREBROVASCULAR ACCIDENT [None]
  - UTERINE LEIOMYOMA [None]
  - TYPE 2 DIABETES MELLITUS [None]
  - MERALGIA PARAESTHETICA [None]
  - MENORRHAGIA [None]
  - CARPAL TUNNEL SYNDROME [None]
  - SLEEP APNOEA SYNDROME [None]
  - IMPAIRED FASTING GLUCOSE [None]
  - MENOPAUSE [None]
  - TRANSIENT ISCHAEMIC ATTACK [None]
  - AGORAPHOBIA [None]
